FAERS Safety Report 13139401 (Version 1)
Quarter: 2017Q1

REPORT INFORMATION
  Report Type: Spontaneous
  Country: US (occurrence: US)
  Receive Date: 20170123
  Receipt Date: 20170123
  Transmission Date: 20170428
  Serious: Yes (Hospitalization, Other)
  Sender: FDA-Public Use
  Company Number: US-PFIZER INC-2017027282

PATIENT
  Sex: Female

DRUGS (3)
  1. L-ASPARAGINASE [Suspect]
     Active Substance: ASPARAGINASE
     Dosage: UNK
     Dates: end: 20141128
  2. VINCRISTINE SULFATE. [Suspect]
     Active Substance: VINCRISTINE SULFATE
     Dosage: 1 MG, UNK
     Route: 042
     Dates: start: 20141128
  3. VINCRISTINE SULFATE. [Suspect]
     Active Substance: VINCRISTINE SULFATE
     Dosage: UNK

REACTIONS (14)
  - Dyspnoea [Unknown]
  - Hyponatraemia [Unknown]
  - Asthenia [Unknown]
  - Antithrombin III decreased [Unknown]
  - Hypertriglyceridaemia [Not Recovered/Not Resolved]
  - Fatigue [Unknown]
  - Hyperbilirubinaemia [Unknown]
  - Blood bilirubin abnormal [Unknown]
  - Hepatic steatosis [Unknown]
  - Staphylococcal bacteraemia [Unknown]
  - Neutropenia [Unknown]
  - Pyrexia [Unknown]
  - Malaise [Unknown]
  - Pulmonary embolism [Unknown]

NARRATIVE: CASE EVENT DATE: 20141128
